FAERS Safety Report 5340174-1 (Version None)
Quarter: 2007Q2

REPORT INFORMATION
  Report Type: 
  Country: None (occurrence: None)
  Receive Date: 20070531
  Receipt Date: 20070525
  Transmission Date: 20071010
  Serious: Yes (Life-Threatening, Hospitalization)
  Sender: FDA-Public Use
  Company Number: B0439935A

PATIENT
  Age: 70 Year
  Sex: Female

DRUGS (5)
  1. PAXIL [Suspect]
     Indication: DEPRESSION
     Dosage: 20MG PER DAY
     Route: 048
     Dates: start: 20060722, end: 20060918
  2. RISPERDAL [Suspect]
     Dosage: 1MG PER DAY
     Route: 048
     Dates: end: 20060916
  3. LENDORMIN [Concomitant]
     Route: 048
     Dates: end: 20060916
  4. BEZATOL SR [Concomitant]
     Route: 048
  5. NITOROL R [Concomitant]
     Route: 048

REACTIONS (8)
  - ALTERED STATE OF CONSCIOUSNESS [None]
  - BLOOD PRESSURE DECREASED [None]
  - DYSURIA [None]
  - EYE ROLLING [None]
  - MUSCULOSKELETAL STIFFNESS [None]
  - NEUROLEPTIC MALIGNANT SYNDROME [None]
  - PYREXIA [None]
  - VOMITING [None]
